FAERS Safety Report 21017513 (Version 3)
Quarter: 2022Q3

REPORT INFORMATION
  Report Type: Report from Study
  Country: US (occurrence: US)
  Receive Date: 20220628
  Receipt Date: 20220816
  Transmission Date: 20221027
  Serious: Yes (Death, Other)
  Sender: FDA-Public Use
  Company Number: US-Zogenix International Limited, A wholly owned subsidiary of Zogenix, Inc.-2022ZX000765

PATIENT
  Age: 3 Year
  Sex: Male

DRUGS (7)
  1. FINTEPLA [Suspect]
     Active Substance: FENFLURAMINE
     Indication: Severe myoclonic epilepsy of infancy
     Route: 048
  2. FINTEPLA [Suspect]
     Active Substance: FENFLURAMINE
     Route: 048
  3. FINTEPLA [Suspect]
     Active Substance: FENFLURAMINE
     Route: 048
     Dates: start: 202110, end: 202203
  4. FINTEPLA [Suspect]
     Active Substance: FENFLURAMINE
     Dosage: 4.62 MG BID
     Route: 048
     Dates: start: 202203
  5. DEPAKOTE [Concomitant]
     Active Substance: DIVALPROEX SODIUM
     Indication: Product used for unknown indication
     Route: 065
  6. ONFI [Concomitant]
     Active Substance: CLOBAZAM
     Indication: Product used for unknown indication
     Route: 065
  7. Double bromide [Concomitant]
     Indication: Product used for unknown indication
     Route: 065

REACTIONS (5)
  - Sudden unexplained death in epilepsy [Fatal]
  - Terminal state [Fatal]
  - Ocular hyperaemia [Fatal]
  - Increased upper airway secretion [Fatal]
  - Weight decreased [Fatal]
